FAERS Safety Report 18580744 (Version 1)
Quarter: 2020Q4

REPORT INFORMATION
  Report Type: Spontaneous
  Country: US (occurrence: US)
  Receive Date: 20201204
  Receipt Date: 20201204
  Transmission Date: 20210114
  Serious: No
  Sender: FDA-Public Use
  Company Number: US-ASTRAZENECA-2020SF47743

PATIENT
  Age: 66 Year
  Sex: Female
  Weight: 77.1 kg

DRUGS (18)
  1. FASLODEX [Suspect]
     Active Substance: FULVESTRANT
     Indication: HORMONE RECEPTOR POSITIVE BREAST CANCER
     Route: 030
     Dates: start: 2020
  2. FASLODEX [Suspect]
     Active Substance: FULVESTRANT
     Indication: HORMONE RECEPTOR POSITIVE BREAST CANCER
     Route: 030
     Dates: start: 2016, end: 2020
  3. MULTIVITAMIN [Concomitant]
     Active Substance: VITAMINS
     Dosage: DAILY
     Route: 048
  4. TYLENOL [Concomitant]
     Active Substance: ACETAMINOPHEN
     Indication: BACK PAIN
     Dosage: TWO TIMES A DAY
     Route: 048
  5. RESVERATROL [Concomitant]
     Active Substance: DIETARY SUPPLEMENT\RESVERATROL
     Indication: MEMORY IMPAIRMENT
     Route: 048
  6. EXEMESTANE. [Concomitant]
     Active Substance: EXEMESTANE
     Indication: BREAST CANCER
  7. ROSUVASTATIN. [Suspect]
     Active Substance: ROSUVASTATIN
     Indication: BLOOD CHOLESTEROL
     Route: 048
  8. VITAMIN D3 [Concomitant]
     Active Substance: CHOLECALCIFEROL
     Indication: VITAMIN D DEFICIENCY
     Route: 048
  9. MELOXICAM. [Concomitant]
     Active Substance: MELOXICAM
     Indication: PAIN
  10. ESOMEPRAZOLE. [Suspect]
     Active Substance: ESOMEPRAZOLE MAGNESIUM
     Indication: GASTROOESOPHAGEAL REFLUX DISEASE
     Route: 048
     Dates: start: 2018
  11. BIOTIN [Concomitant]
     Active Substance: BIOTIN
     Indication: ALOPECIA
     Route: 048
  12. BIOTIN [Concomitant]
     Active Substance: BIOTIN
     Indication: ONYCHOMADESIS
     Route: 048
  13. CORTISONE [Concomitant]
     Active Substance: CORTISONE
     Indication: PLANTAR FASCIITIS
  14. NAPROXEN. [Concomitant]
     Active Substance: NAPROXEN
     Indication: PLANTAR FASCIITIS
     Dates: start: 2017
  15. LEVOTHYROXINE. [Concomitant]
     Active Substance: LEVOTHYROXINE
     Indication: THYROID DISORDER
     Route: 048
  16. GLUCOSAMINE AND CHONDROITIN SULFATE SODIUM [Concomitant]
     Dosage: 1500MG/1200MG 2 PER DAY
     Route: 048
  17. FEMARA [Concomitant]
     Active Substance: LETROZOLE
     Indication: BREAST CANCER
  18. FOSAMAX [Concomitant]
     Active Substance: ALENDRONATE SODIUM

REACTIONS (23)
  - Cough [Not Recovered/Not Resolved]
  - Dry throat [Not Recovered/Not Resolved]
  - Gait disturbance [Unknown]
  - Arthritis [Unknown]
  - Back pain [Not Recovered/Not Resolved]
  - Breast mass [Unknown]
  - Gastrooesophageal reflux disease [Unknown]
  - Hot flush [Not Recovered/Not Resolved]
  - Fatigue [Not Recovered/Not Resolved]
  - Intentional product misuse [Not Recovered/Not Resolved]
  - Osteopenia [Not Recovered/Not Resolved]
  - Bone loss [Not Recovered/Not Resolved]
  - Abdominal discomfort [Unknown]
  - Osteoporosis [Not Recovered/Not Resolved]
  - Alopecia [Unknown]
  - Foot deformity [Unknown]
  - Ulcer [Recovered/Resolved]
  - Degenerative bone disease [Not Recovered/Not Resolved]
  - Asthenia [Recovered/Resolved]
  - Plantar fasciitis [Recovered/Resolved]
  - Musculoskeletal discomfort [Not Recovered/Not Resolved]
  - Spinal osteoarthritis [Not Recovered/Not Resolved]
  - Musculoskeletal discomfort [Not Recovered/Not Resolved]

NARRATIVE: CASE EVENT DATE: 2012
